FAERS Safety Report 11158014 (Version 1)
Quarter: 2015Q2

REPORT INFORMATION
  Report Type: Spontaneous
  Country: GB (occurrence: None)
  Receive Date: 20150601
  Receipt Date: 20150601
  Transmission Date: 20150821
  Serious: Yes (Other)
  Sender: FDA-Public Use
  Company Number: FK201502462

PATIENT
  Age: 57 Year
  Sex: Female

DRUGS (6)
  1. AMLODIPINE [Concomitant]
     Active Substance: AMLODIPINE BESYLATE
  2. METHOTREXATE (MANUFACTURER UNKNOWN) (METHOTREXATE) (METHOTREXATE) [Suspect]
     Active Substance: METHOTREXATE
     Indication: PRODUCT USED FOR UNKNOWN INDICATION
  3. CIMZIA [Suspect]
     Active Substance: CERTOLIZUMAB PEGOL
     Indication: RHEUMATOID ARTHRITIS
     Dosage: 400 MG, 1 IN 2 WK, SUBCUTANEOUS
     Route: 058
     Dates: start: 20150422
  4. RAMIPRIL (RAMIPRIL) [Concomitant]
     Active Substance: RAMIPRIL
  5. NITROFURANTOIN (NITROFURANTOIN) [Concomitant]
     Active Substance: NITROFURANTOIN
  6. TRIMETHOPRIM (TRIMETHOPRIM) [Concomitant]
     Active Substance: TRIMETHOPRIM

REACTIONS (9)
  - Infection [None]
  - Nausea [None]
  - Pyrexia [None]
  - Headache [None]
  - Alanine aminotransferase increased [None]
  - Cellulitis [None]
  - Dizziness [None]
  - Feeling abnormal [None]
  - Hypertension [None]

NARRATIVE: CASE EVENT DATE: 2015
